FAERS Safety Report 8414594-2 (Version None)
Quarter: 2012Q2

REPORT INFORMATION
  Report Type: 
  Country: None (occurrence: None)
  Receive Date: 20120605
  Receipt Date: 20120529
  Transmission Date: 20120825
  Serious: Yes (Other)
  Sender: FDA-Public Use
  Company Number: JP-PFIZER INC-2012122840

PATIENT
  Age: 53 Year
  Sex: Female

DRUGS (3)
  1. SUMILU [Concomitant]
     Route: 003
  2. LYRICA [Suspect]
     Dosage: 75 MG, 1X/DAY
     Route: 048
     Dates: start: 20120424, end: 20120427
  3. SELBEX [Concomitant]

REACTIONS (2)
  - CONJUNCTIVAL HAEMORRHAGE [None]
  - DIARRHOEA [None]
